FAERS Safety Report 7720313-5 (Version None)
Quarter: 2011Q3

REPORT INFORMATION
  Report Type: 
  Country: None (occurrence: None)
  Receive Date: 20110831
  Receipt Date: 20110827
  Transmission Date: 20111222
  Serious: No
  Sender: FDA-Public Use
  Company Number: US-PFIZER INC-2011199714

PATIENT
  Sex: Female
  Weight: 63.4 kg

DRUGS (1)
  1. ADVIL LIQUI-GELS [Suspect]
     Indication: MALAISE
     Dosage: 200 MG, 1X/DAY
     Route: 048
     Dates: start: 20110826, end: 20110827

REACTIONS (3)
  - BLISTER [None]
  - PAPULE [None]
  - ERYTHEMA [None]
